FAERS Safety Report 24138108 (Version 3)
Quarter: 2024Q3

REPORT INFORMATION
  Report Type: Spontaneous
  Country: US (occurrence: US)
  Receive Date: 20240725
  Receipt Date: 20240801
  Transmission Date: 20241017
  Serious: Yes (Other)
  Sender: SANOFI AVENTIS
  Company Number: US-SA-SAC20240722000129

PATIENT
  Age: 84 Year
  Sex: Male
  Weight: 88.45 kg

DRUGS (95)
  1. DUPIXENT [Suspect]
     Active Substance: DUPILUMAB
     Indication: Asthma
     Dosage: 300 MG, QOW
     Route: 058
  2. TYLENOL [Concomitant]
     Active Substance: ACETAMINOPHEN
     Dosage: UNK
  3. TYLENOL [Concomitant]
     Active Substance: ACETAMINOPHEN
  4. TYLENOL [Concomitant]
     Active Substance: ACETAMINOPHEN
  5. AMLODIPINE BESYLATE [Concomitant]
     Active Substance: AMLODIPINE BESYLATE
  6. AMLODIPINE BESYLATE [Concomitant]
     Active Substance: AMLODIPINE BESYLATE
  7. AMLODIPINE BESYLATE [Concomitant]
     Active Substance: AMLODIPINE BESYLATE
  8. VITAMIN D3 [Concomitant]
     Active Substance: CHOLECALCIFEROL
     Dosage: UNK, QD
  9. VITAMIN D3 [Concomitant]
     Active Substance: CHOLECALCIFEROL
  10. VITAMIN D3 [Concomitant]
     Active Substance: CHOLECALCIFEROL
  11. RABEPRAZOLE SODIUM [Concomitant]
     Active Substance: RABEPRAZOLE SODIUM
  12. RABEPRAZOLE SODIUM [Concomitant]
     Active Substance: RABEPRAZOLE SODIUM
  13. RABEPRAZOLE SODIUM [Concomitant]
     Active Substance: RABEPRAZOLE SODIUM
  14. ALBUTEROL SULFATE [Concomitant]
     Active Substance: ALBUTEROL SULFATE
  15. ALBUTEROL SULFATE [Concomitant]
     Active Substance: ALBUTEROL SULFATE
  16. ALBUTEROL SULFATE [Concomitant]
     Active Substance: ALBUTEROL SULFATE
  17. LEXAPRO [Concomitant]
     Active Substance: ESCITALOPRAM OXALATE
  18. LEXAPRO [Concomitant]
     Active Substance: ESCITALOPRAM OXALATE
  19. LEXAPRO [Concomitant]
     Active Substance: ESCITALOPRAM OXALATE
  20. HYDROCHLOROTHIAZIDE [Concomitant]
     Active Substance: HYDROCHLOROTHIAZIDE
  21. HYDROCHLOROTHIAZIDE [Concomitant]
     Active Substance: HYDROCHLOROTHIAZIDE
  22. HYDROCHLOROTHIAZIDE [Concomitant]
     Active Substance: HYDROCHLOROTHIAZIDE
  23. CRESTOR [Concomitant]
     Active Substance: ROSUVASTATIN CALCIUM
  24. CRESTOR [Concomitant]
     Active Substance: ROSUVASTATIN CALCIUM
  25. CRESTOR [Concomitant]
     Active Substance: ROSUVASTATIN CALCIUM
  26. DALIRESP [Concomitant]
     Active Substance: ROFLUMILAST
  27. DALIRESP [Concomitant]
     Active Substance: ROFLUMILAST
  28. DALIRESP [Concomitant]
     Active Substance: ROFLUMILAST
  29. FLOVENT [Concomitant]
     Active Substance: FLUTICASONE PROPIONATE
     Dosage: UNK
  30. FLOVENT [Concomitant]
     Active Substance: FLUTICASONE PROPIONATE
  31. FLOVENT [Concomitant]
     Active Substance: FLUTICASONE PROPIONATE
  32. SODIUM CHLORIDE [Concomitant]
     Active Substance: SODIUM CHLORIDE
  33. SODIUM CHLORIDE [Concomitant]
     Active Substance: SODIUM CHLORIDE
  34. SODIUM CHLORIDE [Concomitant]
     Active Substance: SODIUM CHLORIDE
  35. LOPRESSOR [Concomitant]
     Active Substance: METOPROLOL TARTRATE
  36. LOPRESSOR [Concomitant]
     Active Substance: METOPROLOL TARTRATE
  37. LOPRESSOR [Concomitant]
     Active Substance: METOPROLOL TARTRATE
  38. TRIAMCINOLONE ACETONIDE [Concomitant]
     Active Substance: TRIAMCINOLONE ACETONIDE
  39. GABAPENTIN [Concomitant]
     Active Substance: GABAPENTIN
  40. ZITHROMAX [Concomitant]
     Active Substance: AZITHROMYCIN DIHYDRATE
  41. ZITHROMAX [Concomitant]
     Active Substance: AZITHROMYCIN DIHYDRATE
  42. ZITHROMAX [Concomitant]
     Active Substance: AZITHROMYCIN DIHYDRATE
  43. TESSALON [Concomitant]
     Active Substance: BENZONATATE
  44. TESSALON [Concomitant]
     Active Substance: BENZONATATE
  45. TESSALON [Concomitant]
     Active Substance: BENZONATATE
  46. CYANOCOBALAMIN [Concomitant]
     Active Substance: CYANOCOBALAMIN
     Dosage: UNK
  47. CYANOCOBALAMIN [Concomitant]
     Active Substance: CYANOCOBALAMIN
  48. DILTIAZEM [Concomitant]
     Active Substance: DILTIAZEM
  49. DILTIAZEM [Concomitant]
     Active Substance: DILTIAZEM
  50. DILTIAZEM [Concomitant]
     Active Substance: DILTIAZEM
  51. BENZONATATE [Concomitant]
     Active Substance: BENZONATATE
  52. BENZONATATE [Concomitant]
     Active Substance: BENZONATATE
  53. BENZONATATE [Concomitant]
     Active Substance: BENZONATATE
  54. NITROGLYCERIN [Concomitant]
     Active Substance: NITROGLYCERIN
  55. NITROGLYCERIN [Concomitant]
     Active Substance: NITROGLYCERIN
  56. NITROGLYCERIN [Concomitant]
     Active Substance: NITROGLYCERIN
  57. STIOLTO RESPIMAT [Concomitant]
     Active Substance: OLODATEROL HYDROCHLORIDE\TIOTROPIUM BROMIDE MONOHYDRATE
  58. STIOLTO RESPIMAT [Concomitant]
     Active Substance: OLODATEROL HYDROCHLORIDE\TIOTROPIUM BROMIDE MONOHYDRATE
  59. STIOLTO RESPIMAT [Concomitant]
     Active Substance: OLODATEROL HYDROCHLORIDE\TIOTROPIUM BROMIDE MONOHYDRATE
  60. SODIUM BICARBONATE [Concomitant]
     Active Substance: SODIUM BICARBONATE
  61. SODIUM BICARBONATE [Concomitant]
     Active Substance: SODIUM BICARBONATE
  62. SODIUM BICARBONATE [Concomitant]
     Active Substance: SODIUM BICARBONATE
  63. HORIZANT [Concomitant]
     Active Substance: GABAPENTIN ENACARBIL
  64. HORIZANT [Concomitant]
     Active Substance: GABAPENTIN ENACARBIL
  65. HORIZANT [Concomitant]
     Active Substance: GABAPENTIN ENACARBIL
  66. AZITHROMYCIN [Concomitant]
     Active Substance: AZITHROMYCIN
  67. AZITHROMYCIN [Concomitant]
     Active Substance: AZITHROMYCIN
  68. AZITHROMYCIN [Concomitant]
     Active Substance: AZITHROMYCIN
  69. GABAPENTIN [Concomitant]
     Active Substance: GABAPENTIN
     Dosage: UNK
  70. GABAPENTIN [Concomitant]
     Active Substance: GABAPENTIN
  71. GABAPENTIN [Concomitant]
     Active Substance: GABAPENTIN
  72. MEMANTINE [Concomitant]
     Active Substance: MEMANTINE
     Dosage: UNK
  73. MEMANTINE [Concomitant]
     Active Substance: MEMANTINE
  74. MEMANTINE [Concomitant]
     Active Substance: MEMANTINE
  75. ROSUVASTATIN CALCIUM [Concomitant]
     Active Substance: ROSUVASTATIN CALCIUM
     Dosage: UNK
  76. ROSUVASTATIN CALCIUM [Concomitant]
     Active Substance: ROSUVASTATIN CALCIUM
  77. ROSUVASTATIN CALCIUM [Concomitant]
     Active Substance: ROSUVASTATIN CALCIUM
  78. CARVEDILOL [Concomitant]
     Active Substance: CARVEDILOL
     Dosage: UNK
  79. CARVEDILOL [Concomitant]
     Active Substance: CARVEDILOL
  80. CARVEDILOL [Concomitant]
     Active Substance: CARVEDILOL
  81. OXYGEN [Concomitant]
     Active Substance: OXYGEN
     Dosage: UNK
  82. OXYGEN [Concomitant]
     Active Substance: OXYGEN
  83. OXYGEN [Concomitant]
     Active Substance: OXYGEN
  84. FLOVENT HFA [Concomitant]
     Active Substance: FLUTICASONE PROPIONATE
  85. FLOVENT HFA [Concomitant]
     Active Substance: FLUTICASONE PROPIONATE
  86. LEVOTHYROXINE SODIUM [Concomitant]
     Active Substance: LEVOTHYROXINE SODIUM
     Dosage: UNK
  87. LEVOTHYROXINE SODIUM [Concomitant]
     Active Substance: LEVOTHYROXINE SODIUM
  88. LEVOTHYROXINE SODIUM [Concomitant]
     Active Substance: LEVOTHYROXINE SODIUM
  89. ASPIRIN [Concomitant]
     Active Substance: ASPIRIN
  90. ASPIRIN [Concomitant]
     Active Substance: ASPIRIN
  91. VITAMINS [Concomitant]
     Active Substance: VITAMINS
  92. GABAPENTIN [Concomitant]
     Active Substance: GABAPENTIN
     Dosage: UNK
  93. AMLODIPINE BESYLATE [Concomitant]
     Active Substance: AMLODIPINE BESYLATE
     Dosage: UNK
  94. TOBRAMYCIN [Concomitant]
     Active Substance: TOBRAMYCIN\TOBRAMYCIN SULFATE
     Dosage: UNK
  95. OXYGEN [Concomitant]
     Active Substance: OXYGEN
     Dosage: UNK

REACTIONS (6)
  - Prostate cancer [Unknown]
  - Dyspnoea [Unknown]
  - Cystic fibrosis [Unknown]
  - Condition aggravated [Unknown]
  - Flatulence [Unknown]
  - Abdominal discomfort [Unknown]
